FAERS Safety Report 8945200 (Version 1)
Quarter: 2012Q4

REPORT INFORMATION
  Report Type: 
  Country: BR (occurrence: BR)
  Receive Date: 20121205
  Receipt Date: 20121205
  Transmission Date: 20130627
  Serious: Yes (Death)
  Sender: FDA-Public Use
  Company Number: BR-TEVA-372752ISR

PATIENT
  Age: 53 Year
  Sex: Male
  Weight: 75 kg

DRUGS (5)
  1. COPAXONE [Suspect]
     Indication: MULTIPLE SCLEROSIS
     Dosage: 20 Milligram Daily;
     Route: 058
     Dates: start: 20040101, end: 20120130
  2. CARBAMAZEPINE [Concomitant]
     Route: 048
  3. OMEPRAZOLE [Concomitant]
     Route: 048
  4. FLUOXETINE [Concomitant]
     Route: 048
  5. AMITRIPTYLINE [Concomitant]
     Route: 048

REACTIONS (1)
  - Acute myocardial infarction [Fatal]
